FAERS Safety Report 8540588-2 (Version None)
Quarter: 2012Q3

REPORT INFORMATION
  Report Type: 
  Country: None (occurrence: None)
  Receive Date: 20120713
  Receipt Date: 20120629
  Transmission Date: 20120928
  Serious: Yes (Death, Life-Threatening, Hospitalization)
  Sender: FDA-Public Use
  Company Number: TCI2012A03487

PATIENT
  Age: 74 Year
  Sex: Male

DRUGS (5)
  1. CALCIUM CHANNEL BLOCKERS [Concomitant]
  2. SULFONAMIDES, UREA DERIVATIVES [Concomitant]
  3. DIURETICS [Concomitant]
  4. ACTOS [Suspect]
     Indication: TYPE 2 DIABETES MELLITUS
     Dosage: 15 MG (15 MG, 1 D), PER ORAL; 30 MG (30 MG, 1 D) PER ORAL;
     Route: 048
     Dates: start: 20080527
  5. ANGIOTENSIN II ANTAGONISTS [Concomitant]

REACTIONS (4)
  - BLOOD CALCIUM INCREASED [None]
  - BLOOD URIC ACID INCREASED [None]
  - BLOOD CREATININE INCREASED [None]
  - MULTIPLE MYELOMA [None]
